FAERS Safety Report 18126246 (Version 1)
Quarter: 2020Q3

REPORT INFORMATION
  Report Type: Spontaneous
  Country: DE (occurrence: DE)
  Receive Date: 20200808
  Receipt Date: 20200808
  Transmission Date: 20201103
  Serious: Yes (Hospitalization)
  Sender: FDA-Public Use
  Company Number: DE-AUROBINDO-AUR-APL-2020-038028

PATIENT
  Sex: Female

DRUGS (4)
  1. MIRTAZAPINE 15MG [Suspect]
     Active Substance: MIRTAZAPINE
     Indication: PRODUCT USED FOR UNKNOWN INDICATION
     Dosage: UNK
     Route: 065
     Dates: start: 20200107
  2. ETORICOXIB 60 MG [Suspect]
     Active Substance: ETORICOXIB
     Indication: PRODUCT USED FOR UNKNOWN INDICATION
     Dosage: 60 MILLIGRAM, EVERY WEEK
     Route: 065
     Dates: start: 20170608
  3. HULIO [Suspect]
     Active Substance: ADALIMUMAB-FKJP
     Indication: AXIAL SPONDYLOARTHRITIS
     Dosage: 40 MILLIGRAM, 2 WEEK
     Route: 065
     Dates: start: 20190705
  4. LEVOTHYROXINE. [Concomitant]
     Active Substance: LEVOTHYROXINE
     Indication: PRODUCT USED FOR UNKNOWN INDICATION
     Dosage: UNK
     Route: 065

REACTIONS (2)
  - Abdominal pain upper [Recovered/Resolved]
  - Gastric mucosa erythema [Recovered/Resolved]

NARRATIVE: CASE EVENT DATE: 202005
